FAERS Safety Report 7215509-5 (Version None)
Quarter: 2011Q1

REPORT INFORMATION
  Report Type: 
  Country: None (occurrence: None)
  Receive Date: 20110107
  Receipt Date: 20101229
  Transmission Date: 20110831
  Serious: Yes (Other)
  Sender: FDA-Public Use
  Company Number: B0687245A

PATIENT
  Sex: Female

DRUGS (5)
  1. CLAVAMOX [Suspect]
     Indication: UPPER RESPIRATORY TRACT INFECTION
     Dosage: 3.03G PER DAY
     Route: 048
     Dates: start: 20101030, end: 20101106
  2. MUCODYNE [Concomitant]
     Indication: UPPER RESPIRATORY TRACT INFECTION
     Dosage: .8G PER DAY
     Route: 048
     Dates: start: 20101030
  3. ONON [Concomitant]
     Indication: UPPER RESPIRATORY TRACT INFECTION
     Dosage: 1G PER DAY
     Route: 048
  4. CLAVAMOX [Suspect]
     Dosage: 3.03G PER DAY
     Route: 048
     Dates: start: 20101130, end: 20101201
  5. CELTECT [Concomitant]
     Route: 048

REACTIONS (1)
  - ERYTHEMA MULTIFORME [None]
